FAERS Safety Report 7416573-0 (Version None)
Quarter: 2011Q2

REPORT INFORMATION
  Report Type: 
  Country: None (occurrence: None)
  Receive Date: 20110415
  Receipt Date: 20110413
  Transmission Date: 20111010
  Serious: Yes (Other)
  Sender: FDA-Public Use
  Company Number: CA-SP-2011-00504

PATIENT
  Age: 20 Year
  Sex: Female

DRUGS (2)
  1. TUBERSOL [Suspect]
     Indication: TUBERCULIN TEST
     Route: 023
     Dates: start: 20101123, end: 20101123
  2. YASMIN [Concomitant]

REACTIONS (5)
  - PARAESTHESIA ORAL [None]
  - ANGIOEDEMA [None]
  - FLUSHING [None]
  - DYSPNOEA [None]
  - CHEST DISCOMFORT [None]
